FAERS Safety Report 18070663 (Version 1)
Quarter: 2020Q3

REPORT INFORMATION
  Report Type: Spontaneous
  Country: US (occurrence: US)
  Receive Date: 20200724
  Receipt Date: 20200724
  Transmission Date: 20201103
  Serious: Yes (Hospitalization)
  Sender: FDA-Public Use
  Company Number: None

PATIENT
  Sex: Male

DRUGS (26)
  1. CARVEDILOL. [Concomitant]
     Active Substance: CARVEDILOL
  2. METHOCARBAM [Concomitant]
     Active Substance: METHOCARBAMOL
  3. MUPIROCIN. [Concomitant]
     Active Substance: MUPIROCIN
  4. TIZANIDINE. [Concomitant]
     Active Substance: TIZANIDINE
  5. ACETAMIN [Concomitant]
     Active Substance: ACETAMINOPHEN
  6. BUMETANIDE. [Concomitant]
     Active Substance: BUMETANIDE
  7. DICLOFENAC [Concomitant]
     Active Substance: DICLOFENAC
  8. DOK [Concomitant]
     Active Substance: DOCUSATE SODIUM
  9. ENOXAPARIN [Concomitant]
     Active Substance: ENOXAPARIN
  10. LEVOTHYROXIN [Concomitant]
     Active Substance: LEVOTHYROXINE
  11. VENLAFAXINE [Concomitant]
     Active Substance: VENLAFAXINE HYDROCHLORIDE
  12. FORTEO [Suspect]
     Active Substance: TERIPARATIDE
     Indication: SENILE OSTEOPOROSIS
     Route: 058
     Dates: start: 20191221
  13. HYD POL/CPM [Concomitant]
  14. ROSUVASTATIN. [Concomitant]
     Active Substance: ROSUVASTATIN
  15. SMZ/TMP DS [Concomitant]
     Active Substance: SULFAMETHOXAZOLE\TRIMETHOPRIM
  16. TESTOSTERONE GEL [Concomitant]
     Active Substance: TESTOSTERONE
  17. AMOX/K CLAV [Concomitant]
     Active Substance: AMOXICILLIN\CLAVULANATE POTASSIUM
  18. LANSOPRAZOLE. [Concomitant]
     Active Substance: LANSOPRAZOLE
  19. MODAFINIL. [Concomitant]
     Active Substance: MODAFINIL
  20. OXYCODONE [Concomitant]
     Active Substance: OXYCODONE
  21. SUCRALFATE. [Concomitant]
     Active Substance: SUCRALFATE
  22. TRIAMCINOLON OIN [Concomitant]
  23. ALLOPURINOL. [Concomitant]
     Active Substance: ALLOPURINOL
  24. AZITHROMYCIN ANHYDROUS. [Concomitant]
     Active Substance: AZITHROMYCIN ANHYDROUS
  25. GABAPENTIN. [Concomitant]
     Active Substance: GABAPENTIN
  26. POLMYXIN B/TRIMETHP [Concomitant]

REACTIONS (2)
  - Loss of consciousness [None]
  - Blood glucose decreased [None]
